FAERS Safety Report 18341235 (Version 2)
Quarter: 2020Q4

REPORT INFORMATION
  Report Type: Spontaneous
  Country: NL (occurrence: NL)
  Receive Date: 20201003
  Receipt Date: 20201105
  Transmission Date: 20210113
  Serious: Yes (Other)
  Sender: FDA-Public Use
  Company Number: NL-AMGEN-NLDSP2020157375

PATIENT
  Age: 7 Year
  Sex: Female

DRUGS (6)
  1. CYCLOSPORINE. [Concomitant]
     Active Substance: CYCLOSPORINE
     Indication: PROPHYLAXIS AGAINST GRAFT VERSUS HOST DISEASE
     Dosage: UNK
     Route: 065
  2. NEUPOGEN [Suspect]
     Active Substance: FILGRASTIM
     Indication: PANCYTOPENIA
     Dosage: UNK
     Route: 065
  3. METHOTREXATE. [Concomitant]
     Active Substance: METHOTREXATE
     Indication: PROPHYLAXIS AGAINST GRAFT VERSUS HOST DISEASE
     Dosage: 30 MILLIGRAM/SQ. METER
     Route: 065
  4. ALEMTUZUMAB [Suspect]
     Active Substance: ALEMTUZUMAB
     Indication: BONE MARROW CONDITIONING REGIMEN
     Dosage: 1 MILLIGRAM/KILOGRAM
     Route: 065
  5. FLUDARABINE [Concomitant]
     Active Substance: FLUDARABINE PHOSPHATE
     Indication: BONE MARROW CONDITIONING REGIMEN
     Dosage: 180 MILLIGRAM/SQ. METER
     Route: 065
  6. CYCLOPHOSPHAMIDE. [Concomitant]
     Active Substance: CYCLOPHOSPHAMIDE
     Indication: BONE MARROW CONDITIONING REGIMEN
     Dosage: 200 MILLIGRAM/KILOGRAM
     Route: 065

REACTIONS (2)
  - Off label use [Unknown]
  - Adenovirus reactivation [Recovering/Resolving]
